FAERS Safety Report 21955650 (Version 1)
Quarter: 2023Q1

REPORT INFORMATION
  Report Type: Spontaneous
  Country: PT (occurrence: PT)
  Receive Date: 20230206
  Receipt Date: 20230206
  Transmission Date: 20230417
  Serious: Yes (Life-Threatening, Other)
  Sender: FDA-Public Use
  Company Number: PT-INFARMED-B202301-616

PATIENT
  Age: 90 Year
  Sex: Female
  Weight: 66 kg

DRUGS (3)
  1. AMOXICILLIN\CLAVULANIC ACID [Suspect]
     Active Substance: AMOXICILLIN\CLAVULANIC ACID
     Indication: Soft tissue infection
     Dosage: 1 DOSAGE FORM, TWO TIMES A DAY (875+125MG 12/12H)
     Route: 048
     Dates: start: 20230121, end: 20230121
  2. SERTACONAZOLE NITRATE [Concomitant]
     Active Substance: SERTACONAZOLE NITRATE
     Indication: Product used for unknown indication
     Dosage: UNK
     Route: 003
  3. Fucidine [Concomitant]
     Indication: Product used for unknown indication
     Dosage: UNK
     Route: 003

REACTIONS (2)
  - Kounis syndrome [Recovered/Resolved]
  - Diarrhoea [Recovered/Resolved]

NARRATIVE: CASE EVENT DATE: 20230121
